FAERS Safety Report 24786871 (Version 1)
Quarter: 2024Q4

REPORT INFORMATION
  Report Type: Spontaneous
  Country: US (occurrence: US)
  Receive Date: 20241230
  Receipt Date: 20241230
  Transmission Date: 20250114
  Serious: No
  Sender: BIOLINERX
  Company Number: US-BIOLINERX-2024BIO000065

PATIENT
  Age: 63 Year
  Sex: Male

DRUGS (1)
  1. APHEXDA [Suspect]
     Active Substance: MOTIXAFORTIDE ACETATE
     Indication: Plasma cell myeloma
     Dosage: UNK, ONE TIME DOSE
     Route: 065
     Dates: start: 20240909

REACTIONS (1)
  - Paraesthesia [Recovered/Resolved]

NARRATIVE: CASE EVENT DATE: 20240909
